FAERS Safety Report 9807864 (Version 1)
Quarter: 2014Q1

REPORT INFORMATION
  Report Type: Spontaneous
  Country: DE (occurrence: None)
  Receive Date: 20140108
  Receipt Date: 20140108
  Transmission Date: 20141002
  Serious: Yes (Hospitalization, Congenital Anomaly, Other)
  Sender: FDA-Public Use
  Company Number: SYM-2013-14509

PATIENT
  Age: 0 Day
  Sex: Male

DRUGS (3)
  1. ELONTRIL [Suspect]
     Indication: DEPRESSION
     Route: 064
  2. VENLAFAXINE [Suspect]
     Indication: DEPRESSION
     Route: 064
  3. SEROQUEL [Suspect]
     Indication: DEPRESSION
     Route: 064

REACTIONS (6)
  - Neonatal respiratory distress syndrome [None]
  - Exposure during pregnancy [None]
  - Amniocentesis abnormal [None]
  - Umbilical cord abnormality [None]
  - Feeding disorder neonatal [None]
  - Atrial septal defect [None]
